FAERS Safety Report 9615854 (Version 1)
Quarter: 2013Q4

REPORT INFORMATION
  Report Type: Spontaneous
  Country: US (occurrence: US)
  Receive Date: 20131011
  Receipt Date: 20131011
  Transmission Date: 20140711
  Serious: No
  Sender: FDA-Public Use
  Company Number: US-GLAXOSMITHKLINE-A1028547A

PATIENT
  Age: 82 Year
  Sex: Male

DRUGS (7)
  1. JALYN [Suspect]
     Indication: POLLAKIURIA
     Dosage: .5MCG PER DAY
     Route: 048
     Dates: start: 201306
  2. HEART MEDICATION [Concomitant]
  3. BABY ASPIRIN [Concomitant]
  4. WATER PILL [Concomitant]
  5. VITAMIN D [Concomitant]
  6. ANTI-CHOLESTEROL MEDICATION [Concomitant]
  7. NERVE MEDICATION [Concomitant]

REACTIONS (2)
  - Fluid retention [Not Recovered/Not Resolved]
  - Dysphagia [Unknown]
